FAERS Safety Report 22591108 (Version 1)
Quarter: 2023Q2

REPORT INFORMATION
  Report Type: Spontaneous
  Country: IT (occurrence: IT)
  Receive Date: 20230612
  Receipt Date: 20230612
  Transmission Date: 20230721
  Serious: Yes (Life-Threatening, Other)
  Sender: FDA-Public Use
  Company Number: None

PATIENT
  Age: 29 Year
  Sex: Female

DRUGS (5)
  1. IBUPROFEN [Suspect]
     Active Substance: IBUPROFEN
     Indication: Product used for unknown indication
     Dosage: 800 MILLIGRAM, QD
     Route: 048
     Dates: start: 20230308, end: 20230308
  2. BROMAZEPAM [Suspect]
     Active Substance: BROMAZEPAM
     Indication: Product used for unknown indication
     Dosage: 20 MILLILITER
     Route: 048
     Dates: start: 20230308, end: 20230308
  3. BROMAZEPAM [Suspect]
     Active Substance: BROMAZEPAM
     Dosage: 2.5 MILLIGRAM PER MILLILITRE
     Route: 048
     Dates: start: 20230309, end: 20230309
  4. TACHIPIRINA [Suspect]
     Active Substance: ACETAMINOPHEN
     Indication: Product used for unknown indication
     Dosage: 4 MILLIGRAM
     Route: 048
     Dates: start: 20230309, end: 20230309
  5. PANTOPRAZOLE SODIUM [Suspect]
     Active Substance: PANTOPRAZOLE SODIUM
     Indication: Product used for unknown indication
     Dosage: 280 MILLIGRAM
     Route: 048
     Dates: start: 20230309, end: 20230309

REACTIONS (5)
  - Drug abuse [Recovered/Resolved]
  - Depressed level of consciousness [Recovering/Resolving]
  - Toxicity to various agents [Recovered/Resolved]
  - Abdominal pain upper [Recovering/Resolving]
  - Asthenia [Recovering/Resolving]

NARRATIVE: CASE EVENT DATE: 20230309
